FAERS Safety Report 4303848-7 (Version None)
Quarter: 2004Q1

REPORT INFORMATION
  Report Type: 
  Country: None (occurrence: None)
  Receive Date: 20040225
  Receipt Date: 20030926
  Transmission Date: 20041129
  Serious: Yes (Hospitalization)
  Sender: FDA-Public Use
  Company Number: US-GLAXOSMITHKLINE-A0427681A

PATIENT
  Sex: Male

DRUGS (4)
  1. REQUIP [Suspect]
     Indication: PARKINSON'S DISEASE
     Dosage: 3MG THREE TIMES PER DAY
     Route: 048
  2. DIOVAN [Concomitant]
  3. VIOXX [Concomitant]
  4. ZOLOFT [Concomitant]

REACTIONS (7)
  - DIZZINESS [None]
  - DYSPEPSIA [None]
  - HYPERTENSION [None]
  - OEDEMA PERIPHERAL [None]
  - SOMNOLENCE [None]
  - SUDDEN ONSET OF SLEEP [None]
  - WHEEZING [None]
